FAERS Safety Report 8548257-X (Version None)
Quarter: 2012Q3

REPORT INFORMATION
  Report Type: 
  Country: None (occurrence: None)
  Receive Date: 20120730
  Receipt Date: 20120720
  Transmission Date: 20120928
  Serious: Yes (Hospitalization)
  Sender: FDA-Public Use
  Company Number: US-AMGEN-USASP2012045403

PATIENT
  Age: 65 Year
  Sex: Male

DRUGS (2)
  1. ENBREL [Suspect]
     Indication: RHEUMATOID ARTHRITIS
     Dosage: 50 MG, QWK
     Dates: start: 20100701
  2. NAPROXEN [Concomitant]
     Dosage: UNK

REACTIONS (8)
  - FAECES DISCOLOURED [None]
  - NECK PAIN [None]
  - PALPITATIONS [None]
  - ULCER HAEMORRHAGE [None]
  - HAEMATOCHEZIA [None]
  - DIARRHOEA [None]
  - CHEST PAIN [None]
  - RHEUMATOID ARTHRITIS [None]
